FAERS Safety Report 6561973-4 (Version None)
Quarter: 2010Q1

REPORT INFORMATION
  Report Type: 
  Country: None (occurrence: None)
  Receive Date: 20100130
  Receipt Date: 20091229
  Transmission Date: 20100710
  Serious: No
  Sender: FDA-Public Use
  Company Number: US-ABBOTT-08P-163-0450195-00

PATIENT
  Sex: Female
  Weight: 61.29 kg

DRUGS (8)
  1. HUMIRA [Suspect]
     Indication: RHEUMATOID ARTHRITIS
     Route: 058
     Dates: start: 20070101
  2. HUMIRA [Suspect]
     Route: 058
     Dates: start: 20070101
  3. PLAQUENIL [Concomitant]
     Indication: RHEUMATOID ARTHRITIS
     Dosage: MON-WED-FRI
     Route: 048
     Dates: start: 20070101
  4. RESTASIS [Concomitant]
     Indication: DRUG USE FOR UNKNOWN INDICATION
  5. FISH OIL [Concomitant]
     Indication: DRUG USE FOR UNKNOWN INDICATION
  6. MIRAPEX [Concomitant]
     Indication: RESTLESS LEGS SYNDROME
  7. LEXAPRO [Concomitant]
     Indication: DEPRESSION
  8. MIGRAINE [Concomitant]
     Indication: MIGRAINE

REACTIONS (1)
  - INJECTION SITE PAIN [None]
